FAERS Safety Report 8861666 (Version 1)
Quarter: 2012Q4

REPORT INFORMATION
  Report Type: Spontaneous
  Country: US (occurrence: None)
  Receive Date: 20121025
  Receipt Date: 20121025
  Transmission Date: 20130627
  Serious: No
  Sender: FDA-Public Use
  Company Number: None

PATIENT
  Age: 65 Year
  Sex: Male
  Weight: 86 kg

DRUGS (3)
  1. MEPERIDINE [Suspect]
     Indication: COLONOSCOPY
     Route: 042
     Dates: start: 20120202, end: 20120202
  2. MEPERIDINE [Suspect]
     Indication: PREMEDICATION
     Route: 042
     Dates: start: 20120202, end: 20120202
  3. MIDAZOLAM [Suspect]
     Route: 042
     Dates: start: 20120202, end: 20120202

REACTIONS (6)
  - Aggression [None]
  - Unresponsive to stimuli [None]
  - Rash [None]
  - Confusional state [None]
  - Respiratory depression [None]
  - Procedural complication [None]
